FAERS Safety Report 8521092-4 (Version None)
Quarter: 2012Q3

REPORT INFORMATION
  Report Type: 
  Country: None (occurrence: None)
  Receive Date: 20120719
  Receipt Date: 20120715
  Transmission Date: 20120928
  Serious: Yes (Life-Threatening, Hospitalization, Disabling, Other)
  Sender: FDA-Public Use
  Company Number: DE-ROCHE-1089010

PATIENT
  Sex: Male
  Weight: 73 kg

DRUGS (3)
  1. PEGASYS [Suspect]
     Indication: HEPATITIS C
     Route: 058
     Dates: start: 20111019, end: 20120303
  2. METHADONE HCL [Concomitant]
     Indication: DRUG DEPENDENCE
     Route: 048
     Dates: start: 20070101
  3. COPEGUS [Suspect]
     Indication: HEPATITIS C
     Route: 048
     Dates: start: 20111020, end: 20120303

REACTIONS (1)
  - GERM CELL CANCER [None]
